FAERS Safety Report 10070816 (Version 1)
Quarter: 2014Q2

REPORT INFORMATION
  Report Type: Spontaneous
  Country: VE (occurrence: VE)
  Receive Date: 20140410
  Receipt Date: 20140410
  Transmission Date: 20141212
  Serious: Yes (Death, Other)
  Sender: FDA-Public Use
  Company Number: VE-BAYER-2014-051057

PATIENT
  Sex: Male

DRUGS (1)
  1. STIVARGA [Suspect]
     Indication: RECTAL ADENOCARCINOMA
     Dosage: 160 MG, QD

REACTIONS (3)
  - Pharyngeal inflammation [Unknown]
  - No therapeutic response [None]
  - Rectal cancer metastatic [Fatal]
